FAERS Safety Report 23363117 (Version 1)
Quarter: 2024Q1

REPORT INFORMATION
  Report Type: Spontaneous
  Country: US (occurrence: None)
  Receive Date: 20240103
  Receipt Date: 20240103
  Transmission Date: 20240409
  Serious: Yes (Other)
  Sender: FDA-Public Use
  Company Number: None

PATIENT
  Age: 63 Year
  Sex: Male
  Weight: 62.8 kg

DRUGS (2)
  1. OXALIPLATIN [Suspect]
     Active Substance: OXALIPLATIN
     Indication: Colorectal cancer
     Dosage: OTHER FREQUENCY : ONCE EVERY 14 DAYS;?
     Route: 042
     Dates: start: 20231222, end: 20231222
  2. OXALIPLATIN [Suspect]
     Active Substance: OXALIPLATIN
     Indication: Colorectal cancer
     Dosage: OTHER FREQUENCY : ONCE EVERY 14 DAYS;?
     Route: 042
     Dates: start: 20231222, end: 20231222

REACTIONS (6)
  - Limb discomfort [None]
  - Paraesthesia [None]
  - Paraesthesia [None]
  - Paraesthesia [None]
  - Eyelid ptosis [None]
  - Infusion related reaction [None]

NARRATIVE: CASE EVENT DATE: 20231222
